FAERS Safety Report 10902515 (Version 3)
Quarter: 2015Q2

REPORT INFORMATION
  Report Type: Spontaneous
  Country: US (occurrence: US)
  Receive Date: 20150310
  Receipt Date: 20150519
  Transmission Date: 20150821
  Serious: Yes (Death, Hospitalization)
  Sender: FDA-Public Use
  Company Number: US-SA-2015SA027507

PATIENT
  Age: 73 Year
  Sex: Male

DRUGS (1)
  1. CAMPATH [Suspect]
     Active Substance: ALEMTUZUMAB
     Dosage: DOSE- 10
     Route: 042
     Dates: start: 20140327, end: 20140418

REACTIONS (2)
  - Chronic lymphocytic leukaemia [Fatal]
  - Pain [Unknown]

NARRATIVE: CASE EVENT DATE: 20140418
